FAERS Safety Report 10265899 (Version 1)
Quarter: 2014Q2

REPORT INFORMATION
  Report Type: Spontaneous
  Country: GR (occurrence: GR)
  Receive Date: 20140627
  Receipt Date: 20140627
  Transmission Date: 20141212
  Serious: Yes (Other)
  Sender: FDA-Public Use
  Company Number: PHHY2014GR079192

PATIENT
  Age: 82 Year
  Sex: Female

DRUGS (4)
  1. STALEVO [Suspect]
     Dosage: UNK
  2. STALEVO [Suspect]
     Dosage: (ENTA 100 MG, LEVO 25 MG, CARB 200 MG)
  3. STALEVO [Suspect]
     Dosage: (ENTA 150MG, LEVO 37.5 MG, CARB 200 MG)
  4. MINITRAN [Concomitant]
     Dosage: UNK UKN, UNK

REACTIONS (7)
  - Hypotonia [Recovered/Resolved]
  - Disorientation [Recovered/Resolved]
  - Pneumonitis [Recovered/Resolved]
  - Fall [Recovered/Resolved]
  - Grimacing [Recovered/Resolved]
  - Dehydration [Recovered/Resolved]
  - Muscle spasms [Recovered/Resolved]
